FAERS Safety Report 6383163-0 (Version None)
Quarter: 2009Q3

REPORT INFORMATION
  Report Type: 
  Country: None (occurrence: None)
  Receive Date: 20090929
  Receipt Date: 20090914
  Transmission Date: 20100115
  Serious: Yes (Death, Hospitalization)
  Sender: FDA-Public Use
  Company Number: 2009AL001479

PATIENT
  Age: 76 Year
  Sex: Female

DRUGS (15)
  1. DIGOXIN [Suspect]
     Dosage: UNKNOWN, UNK, PO
     Route: 048
  2. PLENDIL [Concomitant]
  3. ZOCOR [Concomitant]
  4. TOPROL-XL [Concomitant]
  5. LASIX [Concomitant]
  6. COREG [Concomitant]
  7. COUMADIN [Concomitant]
  8. HYDRALAZINE HCL [Concomitant]
  9. METOPROLOL [Concomitant]
  10. ASPIRIN [Concomitant]
  11. PROZAC [Concomitant]
  12. LIPITOR [Concomitant]
  13. HYDROCODONE [Concomitant]
  14. TYLENOL (CAPLET) [Concomitant]
  15. PRED-FORTE GTTS [Concomitant]

REACTIONS (21)
  - ANAEMIA [None]
  - ANXIETY [None]
  - AORTIC STENOSIS [None]
  - CARDIAC FAILURE CONGESTIVE [None]
  - CATARACT [None]
  - CEREBROVASCULAR ACCIDENT [None]
  - ECONOMIC PROBLEM [None]
  - FEAR [None]
  - HYPERCALCAEMIA [None]
  - HYPOPARATHYROIDISM [None]
  - INTERMITTENT CLAUDICATION [None]
  - LEFT ATRIAL DILATATION [None]
  - MITRAL VALVE INCOMPETENCE [None]
  - MULTIPLE INJURIES [None]
  - PATHOGEN RESISTANCE [None]
  - PNEUMONIA [None]
  - SURGERY [None]
  - UNRESPONSIVE TO STIMULI [None]
  - URINARY TRACT INFECTION [None]
  - WEIGHT INCREASED [None]
  - WHITE BLOOD CELL COUNT INCREASED [None]
